FAERS Safety Report 25342529 (Version 1)
Quarter: 2025Q2

REPORT INFORMATION
  Report Type: Spontaneous
  Country: US (occurrence: US)
  Receive Date: 20250521
  Receipt Date: 20250521
  Transmission Date: 20250716
  Serious: No
  Sender: CATALYST PHARMA
  Company Number: US-CATALYST PHARMACEUTICALS-US-CATA-25-00382

PATIENT
  Sex: Male
  Weight: 25.397 kg

DRUGS (2)
  1. AGAMREE [Suspect]
     Active Substance: VAMOROLONE
     Indication: Duchenne muscular dystrophy
     Dosage: 3.8 ML ONCE DAILY
     Route: 048
     Dates: start: 20250227
  2. GUANFACINE [Concomitant]
     Active Substance: GUANFACINE
     Indication: Attention deficit hyperactivity disorder
     Dosage: 2 MG ONCE A DAY
     Route: 065

REACTIONS (5)
  - Chest pain [Not Recovered/Not Resolved]
  - Flatulence [Not Recovered/Not Resolved]
  - Pyrexia [Recovering/Resolving]
  - Vomiting [Not Recovered/Not Resolved]
  - Bronchitis [Recovering/Resolving]

NARRATIVE: CASE EVENT DATE: 20250101
